FAERS Safety Report 13533140 (Version 2)
Quarter: 2017Q3

REPORT INFORMATION
  Report Type: Spontaneous
  Country: US (occurrence: US)
  Receive Date: 20170510
  Receipt Date: 20170920
  Transmission Date: 20171127
  Serious: No
  Sender: FDA-Public Use
  Company Number: US-LUNDBECK-DKLU2029046

PATIENT
  Sex: Male

DRUGS (5)
  1. NORTHERA [Suspect]
     Active Substance: DROXIDOPA
     Indication: HYPOTENSION
     Dosage: SCHEDULE A (TITRATING)
     Route: 048
     Dates: start: 20170331
  2. NORTHERA [Suspect]
     Active Substance: DROXIDOPA
     Route: 048
     Dates: start: 20170323
  3. NORTHERA [Suspect]
     Active Substance: DROXIDOPA
     Route: 048
     Dates: start: 2017
  4. SINEMET [Concomitant]
     Active Substance: CARBIDOPA\LEVODOPA
     Indication: PRODUCT USED FOR UNKNOWN INDICATION
     Route: 065
  5. MELOXICAM. [Concomitant]
     Active Substance: MELOXICAM
     Indication: PRODUCT USED FOR UNKNOWN INDICATION
     Route: 065

REACTIONS (3)
  - Balance disorder [Not Recovered/Not Resolved]
  - Fatigue [Not Recovered/Not Resolved]
  - Drug titration error [Unknown]
